FAERS Safety Report 17253349 (Version 1)
Quarter: 2020Q1

REPORT INFORMATION
  Report Type: Report from Study
  Country: CA (occurrence: CA)
  Receive Date: 20200109
  Receipt Date: 20200109
  Transmission Date: 20200409
  Serious: Yes (Other)
  Sender: FDA-Public Use
  Company Number: NVSC2020CA002814

PATIENT
  Sex: Female

DRUGS (1)
  1. CYCLOSPORINE. [Suspect]
     Active Substance: CYCLOSPORINE
     Indication: PSORIASIS
     Dosage: 400 MG
     Route: 048
     Dates: start: 20191229, end: 20191231

REACTIONS (3)
  - Haematemesis [Unknown]
  - Hypersensitivity [Unknown]
  - Haemoptysis [Unknown]
